FAERS Safety Report 4982856-7 (Version None)
Quarter: 2006Q2

REPORT INFORMATION
  Report Type: 
  Country: None (occurrence: None)
  Receive Date: 20060420
  Receipt Date: 20060405
  Transmission Date: 20061013
  Serious: Yes (Death)
  Sender: FDA-Public Use
  Company Number: 2006S1003021

PATIENT
  Age: 52 Year
  Sex: Male

DRUGS (3)
  1. CLOZAPINE [Suspect]
     Dosage: 50 MG HS ORAL
     Route: 048
     Dates: start: 20020501, end: 20060201
  2. CLOZAPINE [Suspect]
     Dosage: 200 MG QAM ORAL ; 200 MG HS ORAL
     Route: 048
     Dates: start: 20020501, end: 20060201
  3. CLOZAPINE [Suspect]
     Dosage: 200 MG QAM ORAL ; 200 MG HS ORAL
     Route: 048
     Dates: start: 20020501, end: 20060201

REACTIONS (1)
  - MYOCARDIAL INFARCTION [None]
